FAERS Safety Report 19700090 (Version 1)
Quarter: 2021Q3

REPORT INFORMATION
  Report Type: Spontaneous
  Country: BE (occurrence: BE)
  Receive Date: 20210813
  Receipt Date: 20210813
  Transmission Date: 20211014
  Serious: Yes (Hospitalization)
  Sender: FDA-Public Use
  Company Number: BE-BAUSCH-BL-2021-026686

PATIENT
  Age: 67 Year
  Sex: Female
  Weight: 60 kg

DRUGS (2)
  1. PREDNISOLONE. [Suspect]
     Active Substance: PREDNISOLONE
     Indication: COVID-19 IMMUNISATION
     Route: 065
     Dates: start: 20210422
  2. MODERNA COVID?19 VACCINE [Suspect]
     Active Substance: CX-024414
     Indication: COVID-19 IMMUNISATION
     Route: 065
     Dates: start: 20210422, end: 20210422

REACTIONS (10)
  - Headache [Recovering/Resolving]
  - Biopsy artery [Recovering/Resolving]
  - Palpitations [Recovering/Resolving]
  - Red blood cell sedimentation rate increased [Recovering/Resolving]
  - Confusional state [Recovering/Resolving]
  - Respiratory distress [Recovering/Resolving]
  - Giant cell arteritis [Recovering/Resolving]
  - Asthenia [Recovering/Resolving]
  - Nausea [Recovering/Resolving]
  - C-reactive protein increased [Recovering/Resolving]

NARRATIVE: CASE EVENT DATE: 20210427
